FAERS Safety Report 7325031-3 (Version None)
Quarter: 2011Q1

REPORT INFORMATION
  Report Type: 
  Country: None (occurrence: None)
  Receive Date: 20110302
  Receipt Date: 20110217
  Transmission Date: 20110831
  Serious: Yes (Other)
  Sender: FDA-Public Use
  Company Number: US-BAYER-2011-016388

PATIENT
  Age: 16 Year
  Sex: Female

DRUGS (3)
  1. IBUPROFEN [Concomitant]
  2. VITAMIN B [Concomitant]
  3. AVELOX [Suspect]
     Indication: BRONCHITIS
     Dosage: DAILY DOSE 400 MG
     Route: 048
     Dates: start: 20110203

REACTIONS (5)
  - SYNCOPE [None]
  - ASTHENIA [None]
  - URTICARIA [None]
  - VOMITING [None]
  - ABDOMINAL PAIN [None]
